FAERS Safety Report 7109606-2 (Version None)
Quarter: 2010Q4

REPORT INFORMATION
  Report Type: 
  Country: None (occurrence: None)
  Receive Date: 20101118
  Receipt Date: 20090112
  Transmission Date: 20110411
  Serious: No
  Sender: FDA-Public Use
  Company Number: 2009BI001131

PATIENT
  Sex: Female

DRUGS (1)
  1. TYSABRI [Suspect]
     Indication: MULTIPLE SCLEROSIS
     Route: 042
     Dates: start: 20080604

REACTIONS (10)
  - BACTERIAL INFECTION [None]
  - DECREASED IMMUNE RESPONSIVENESS [None]
  - HYPERSENSITIVITY [None]
  - INFECTION [None]
  - MULTIPLE SCLEROSIS [None]
  - NUCLEAR MAGNETIC RESONANCE IMAGING BRAIN ABNORMAL [None]
  - SEASONAL ALLERGY [None]
  - SKIN BACTERIAL INFECTION [None]
  - SKIN DISORDER [None]
  - VAGINAL INFECTION [None]
